APPROVED DRUG PRODUCT: REYATAZ
Active Ingredient: ATAZANAVIR SULFATE
Strength: EQ 300MG BASE
Dosage Form/Route: CAPSULE;ORAL
Application: N021567 | Product #004 | TE Code: AB
Applicant: BRISTOL MYERS SQUIBB CO
Approved: Oct 16, 2006 | RLD: Yes | RS: Yes | Type: RX